FAERS Safety Report 25607050 (Version 1)
Quarter: 2025Q3

REPORT INFORMATION
  Report Type: Spontaneous
  Country: GB (occurrence: GB)
  Receive Date: 20250725
  Receipt Date: 20250725
  Transmission Date: 20251021
  Serious: Yes (Other)
  Sender: ELI LILLY AND COMPANY
  Company Number: None

PATIENT
  Age: 65 Year
  Sex: Male
  Weight: 146 kg

DRUGS (2)
  1. MOUNJARO [Suspect]
     Active Substance: TIRZEPATIDE
     Indication: Diabetes mellitus
     Dosage: 2.5 MG, WEEKLY (1/W)
     Route: 065
     Dates: start: 20250708, end: 20250715
  2. TACROLIMUS [Concomitant]
     Active Substance: TACROLIMUS
     Indication: Transplant
     Route: 065
     Dates: start: 20090513

REACTIONS (1)
  - Atrial fibrillation [Recovered/Resolved]

NARRATIVE: CASE EVENT DATE: 20250715
